FAERS Safety Report 9135217 (Version 1)
Quarter: 2013Q1

REPORT INFORMATION
  Report Type: Spontaneous
  Country: US (occurrence: US)
  Receive Date: 20130304
  Receipt Date: 20130304
  Transmission Date: 20140127
  Serious: Yes (Other)
  Sender: FDA-Public Use
  Company Number: US-ENDO PHARMACEUTICALS INC.-PERC20110017

PATIENT
  Age: 50 Year
  Sex: Female

DRUGS (2)
  1. PERCOCET [Suspect]
     Indication: PAIN
     Dosage: 80/2600 MG
     Route: 048
  2. SUBOXONE [Concomitant]
     Indication: DETOXIFICATION
     Dosage: UNK

REACTIONS (1)
  - Drug dependence [Recovered/Resolved]
